FAERS Safety Report 15375267 (Version 1)
Quarter: 2018Q3

REPORT INFORMATION
  Report Type: Report from Study
  Country: DE (occurrence: DE)
  Receive Date: 20180912
  Receipt Date: 20180912
  Transmission Date: 20181010
  Serious: Yes (Hospitalization, Other)
  Sender: FDA-Public Use
  Company Number: DE-BRISTOL-MYERS SQUIBB COMPANY-BMS-2017-107706

PATIENT
  Age: 73 Year
  Sex: Male

DRUGS (8)
  1. NIVOLUMAB [Suspect]
     Active Substance: NIVOLUMAB
     Indication: MALIGNANT MELANOMA
     Dosage: 201 MG, BIWEEKLY
     Route: 042
     Dates: start: 20171012, end: 20180104
  2. METAMIZOLE [Concomitant]
     Active Substance: METAMIZOLE
     Indication: PRODUCT USED FOR UNKNOWN INDICATION
     Dosage: 3000 MG, QD
     Route: 048
  3. CLINDAMYCIN. [Concomitant]
     Active Substance: CLINDAMYCIN
     Indication: PRODUCT USED FOR UNKNOWN INDICATION
     Route: 065
  4. IPILIMUMAB [Suspect]
     Active Substance: IPILIMUMAB
     Indication: MALIGNANT MELANOMA
     Dosage: 205 MG, Q3WK
     Route: 042
     Dates: start: 20171012, end: 20171214
  5. PREDNICARBATE. [Concomitant]
     Active Substance: PREDNICARBATE
     Indication: PRODUCT USED FOR UNKNOWN INDICATION
     Route: 065
  6. PANTOPRAZOL                        /01263201/ [Concomitant]
     Active Substance: PANTOPRAZOLE
     Indication: PRODUCT USED FOR UNKNOWN INDICATION
     Route: 065
  7. UREA. [Concomitant]
     Active Substance: UREA
     Indication: PRODUCT USED FOR UNKNOWN INDICATION
     Route: 065
  8. ENOXAPARINUM NATRICUM [Concomitant]
     Indication: PRODUCT USED FOR UNKNOWN INDICATION
     Dosage: 4000 OTHER, UNK
     Route: 058
     Dates: start: 20180205

REACTIONS (9)
  - Diarrhoea [Recovered/Resolved]
  - Decreased appetite [Unknown]
  - Malignant neoplasm progression [Unknown]
  - Vision blurred [Unknown]
  - Wound infection [Recovering/Resolving]
  - Fatigue [Unknown]
  - Pruritus [Not Recovered/Not Resolved]
  - Weight decreased [Unknown]
  - Dry skin [Unknown]

NARRATIVE: CASE EVENT DATE: 20171012
